FAERS Safety Report 9353744 (Version 1)
Quarter: 2013Q2

REPORT INFORMATION
  Report Type: Spontaneous
  Country: US (occurrence: None)
  Receive Date: 20130617
  Receipt Date: 20130617
  Transmission Date: 20140414
  Serious: Yes (Hospitalization)
  Sender: FDA-Public Use
  Company Number: None

PATIENT
  Sex: Male

DRUGS (1)
  1. TARCEVA [Suspect]
     Route: 048
     Dates: start: 20130516, end: 20130528

REACTIONS (4)
  - Dehydration [None]
  - Vomiting [None]
  - Diarrhoea [None]
  - Hypotension [None]
